FAERS Safety Report 15572556 (Version 1)
Quarter: 2018Q4

REPORT INFORMATION
  Report Type: Spontaneous
  Country: FR (occurrence: FR)
  Receive Date: 20181031
  Receipt Date: 20181031
  Transmission Date: 20190205
  Serious: Yes (Death)
  Sender: FDA-Public Use
  Company Number: FR-JNJFOC-20181043020

PATIENT
  Age: 12 Year
  Sex: Male
  Weight: 18 kg

DRUGS (3)
  1. MIGLUSTAT. [Concomitant]
     Active Substance: MIGLUSTAT
     Indication: PRODUCT USED FOR UNKNOWN INDICATION
     Route: 065
  2. DEPAKINE [Suspect]
     Active Substance: VALPROATE SODIUM
     Indication: EPILEPSY
     Dosage: 200-0-250 MG
     Route: 048
     Dates: start: 201705
  3. EPITOMAX [Suspect]
     Active Substance: TOPIRAMATE
     Indication: EPILEPSY
     Route: 048
     Dates: start: 201703

REACTIONS (2)
  - Fanconi syndrome acquired [Fatal]
  - Arrhythmia [Fatal]

NARRATIVE: CASE EVENT DATE: 201807
